FAERS Safety Report 14325264 (Version 1)
Quarter: 2017Q4

REPORT INFORMATION
  Report Type: Spontaneous
  Country: US (occurrence: US)
  Receive Date: 20171224
  Receipt Date: 20171224
  Transmission Date: 20180321
  Serious: Yes (Life-Threatening)
  Sender: FDA-Public Use
  Company Number: None

PATIENT
  Age: 54 Year
  Sex: Male
  Weight: 202.5 kg

DRUGS (2)
  1. TRESIBA [Suspect]
     Active Substance: INSULIN DEGLUDEC
     Indication: DIABETES MELLITUS
     Dosage: 200 UNITS; INJECTION; DAILY?
     Dates: start: 20171218, end: 20171222
  2. HUMALIN R [Concomitant]

REACTIONS (4)
  - Headache [None]
  - Sinus arrest [None]
  - Hypertension [None]
  - Arrhythmia [None]

NARRATIVE: CASE EVENT DATE: 20171220
